FAERS Safety Report 17401688 (Version 1)
Quarter: 2020Q1

REPORT INFORMATION
  Report Type: Spontaneous
  Country: US (occurrence: US)
  Receive Date: 20200211
  Receipt Date: 20200211
  Transmission Date: 20200409
  Serious: No
  Sender: FDA-Public Use
  Company Number: US-ALLERGAN-1904796US

PATIENT
  Sex: Female
  Weight: 68.04 kg

DRUGS (4)
  1. PREDNISOLONE. [Concomitant]
     Active Substance: PREDNISOLONE
     Indication: KERATOMILEUSIS
     Dosage: UNK UNK, QID
     Dates: start: 20190104
  2. OFLOXACIN. [Concomitant]
     Active Substance: OFLOXACIN
     Indication: KERATOMILEUSIS
     Dosage: 2 GTT, QID
     Dates: start: 20190104
  3. LUBRICATING EYE DROPS [Concomitant]
     Active Substance: CARBOXYMETHYLCELLULOSE SODIUM
     Indication: KERATOMILEUSIS
     Dosage: UNK, Q1HR
     Dates: start: 20190104
  4. FLUOROMETHOLONE, 0.1% [Suspect]
     Active Substance: FLUOROMETHOLONE
     Indication: KERATOMILEUSIS
     Dosage: 1 GTT, QID
     Route: 047
     Dates: start: 20190106

REACTIONS (3)
  - Accidental exposure to product [Unknown]
  - Product dose omission [Unknown]
  - Product container issue [Unknown]
